FAERS Safety Report 25895010 (Version 1)
Quarter: 2025Q4

REPORT INFORMATION
  Report Type: Spontaneous
  Country: GB (occurrence: GB)
  Receive Date: 20251008
  Receipt Date: 20251008
  Transmission Date: 20260118
  Serious: Yes (Other)
  Sender: ROCHE
  Company Number: None

PATIENT
  Age: 67 Year
  Sex: Female

DRUGS (1)
  1. RITUXIMAB [Suspect]
     Active Substance: RITUXIMAB
     Indication: Guillain-Barre syndrome
     Dosage: 1 GRAM STAT
     Route: 065
     Dates: start: 20250730

REACTIONS (1)
  - Nephrotic syndrome [Not Recovered/Not Resolved]
